FAERS Safety Report 14320155 (Version 1)
Quarter: 2017Q4

REPORT INFORMATION
  Report Type: Spontaneous
  Country: US (occurrence: US)
  Receive Date: 20171222
  Receipt Date: 20171222
  Transmission Date: 20180321
  Serious: Yes (Hospitalization)
  Sender: FDA-Public Use
  Company Number: None

PATIENT
  Age: 76 Year
  Sex: Male

DRUGS (1)
  1. LINEZOLID. [Suspect]
     Active Substance: LINEZOLID
     Indication: NOCARDIOSIS
     Route: 048
     Dates: start: 20171102, end: 20171219

REACTIONS (4)
  - Vomiting [None]
  - Thrombocytopenia [None]
  - Nausea [None]
  - Leukopenia [None]

NARRATIVE: CASE EVENT DATE: 20171219
